FAERS Safety Report 20406116 (Version 1)
Quarter: 2022Q1

REPORT INFORMATION
  Report Type: Spontaneous
  Country: DE (occurrence: DE)
  Receive Date: 20220131
  Receipt Date: 20220131
  Transmission Date: 20220424
  Serious: Yes (Other)
  Sender: FDA-Public Use
  Company Number: DE-GLAXOSMITHKLINE-DE2022GSK016580

PATIENT
  Sex: Male

DRUGS (7)
  1. LAMOTRIGINE [Suspect]
     Active Substance: LAMOTRIGINE
     Indication: Frontal lobe epilepsy
     Dosage: UNK
     Route: 064
  2. LEVETIRACETAM [Suspect]
     Active Substance: LEVETIRACETAM
     Indication: Frontal lobe epilepsy
     Dosage: UNK
     Route: 064
  3. CARBAMAZEPINE [Suspect]
     Active Substance: CARBAMAZEPINE
     Indication: Frontal lobe epilepsy
     Dosage: UNK
     Route: 064
  4. OXCARBAZEPINE [Suspect]
     Active Substance: OXCARBAZEPINE
     Indication: Frontal lobe epilepsy
     Dosage: UNK
     Route: 064
  5. LACOSAMIDE [Suspect]
     Active Substance: LACOSAMIDE
     Indication: Frontal lobe epilepsy
     Dosage: UNK
     Route: 064
  6. ZONISAMIDE [Suspect]
     Active Substance: ZONISAMIDE
     Indication: Frontal lobe epilepsy
     Dosage: UNK
     Route: 064
  7. PREGABALIN [Suspect]
     Active Substance: PREGABALIN
     Indication: Frontal lobe epilepsy
     Dosage: UNK
     Route: 064

REACTIONS (3)
  - Respiratory disorder neonatal [Unknown]
  - Strabismus [Unknown]
  - Foetal exposure during pregnancy [Unknown]
